FAERS Safety Report 6498362-7 (Version None)
Quarter: 2009Q4

REPORT INFORMATION
  Report Type: 
  Country: None (occurrence: None)
  Receive Date: 20091215
  Receipt Date: 20091204
  Transmission Date: 20100525
  Serious: Yes (Other)
  Sender: FDA-Public Use
  Company Number: PT-PFIZER INC-2008065114

PATIENT
  Age: 70 Year
  Sex: Male

DRUGS (2)
  1. NEURONTIN [Suspect]
     Indication: ANXIETY
     Dosage: 300 MG, 1X/DAY
     Route: 048
  2. TRITICUM [Concomitant]

REACTIONS (3)
  - ANXIETY [None]
  - DEPRESSION [None]
  - VISION BLURRED [None]
